FAERS Safety Report 8007102-1 (Version None)
Quarter: 2011Q4

REPORT INFORMATION
  Report Type: 
  Country: None (occurrence: None)
  Receive Date: 20111227
  Receipt Date: 20111221
  Transmission Date: 20120403
  Serious: Yes (Other)
  Sender: FDA-Public Use
  Company Number: US-PFIZER INC-2011310027

PATIENT
  Age: 42 Year
  Sex: Male

DRUGS (1)
  1. PREGABALIN [Suspect]
     Indication: FIBROMYALGIA
     Dosage: UNK

REACTIONS (3)
  - MULTIPLE SCLEROSIS [None]
  - FATIGUE [None]
  - DRUG INEFFECTIVE [None]
